FAERS Safety Report 22099441 (Version 2)
Quarter: 2023Q1

REPORT INFORMATION
  Report Type: Report from Study
  Country: CA (occurrence: CA)
  Receive Date: 20230315
  Receipt Date: 20230320
  Transmission Date: 20230418
  Serious: Yes (Death, Other)
  Sender: FDA-Public Use
  Company Number: CA-GILEAD-2022-0599410

PATIENT
  Age: 61 Year
  Sex: Female

DRUGS (13)
  1. SACITUZUMAB GOVITECAN-HZIY [Suspect]
     Active Substance: SACITUZUMAB GOVITECAN-HZIY
     Indication: Triple negative breast cancer
     Dosage: 578 MG
     Route: 042
     Dates: start: 20220914, end: 20230220
  2. SACITUZUMAB GOVITECAN-HZIY [Suspect]
     Active Substance: SACITUZUMAB GOVITECAN-HZIY
     Dosage: 843 MG
     Route: 042
     Dates: start: 20220914
  3. SACITUZUMAB GOVITECAN-HZIY [Suspect]
     Active Substance: SACITUZUMAB GOVITECAN-HZIY
     Dosage: 630 MG
     Route: 042
     Dates: start: 20221005
  4. SACITUZUMAB GOVITECAN-HZIY [Suspect]
     Active Substance: SACITUZUMAB GOVITECAN-HZIY
     Dosage: UNSPECIFIED CYCLE, DAYS 1,8
     Route: 042
     Dates: start: 20221026, end: 20221102
  5. SACITUZUMAB GOVITECAN-HZIY [Suspect]
     Active Substance: SACITUZUMAB GOVITECAN-HZIY
     Dosage: 612 MG
     Route: 042
     Dates: start: 20221123
  6. SACITUZUMAB GOVITECAN-HZIY [Suspect]
     Active Substance: SACITUZUMAB GOVITECAN-HZIY
     Dosage: 632 MG
     Route: 042
  7. SACITUZUMAB GOVITECAN-HZIY [Suspect]
     Active Substance: SACITUZUMAB GOVITECAN-HZIY
     Dosage: 400 MG
     Route: 042
     Dates: end: 20230113
  8. SACITUZUMAB GOVITECAN-HZIY [Suspect]
     Active Substance: SACITUZUMAB GOVITECAN-HZIY
     Dosage: 612 MG
     Route: 042
     Dates: start: 20230103
  9. SACITUZUMAB GOVITECAN-HZIY [Suspect]
     Active Substance: SACITUZUMAB GOVITECAN-HZIY
     Dosage: 7.5 MG/KG (578 MG)
     Route: 042
  10. ADRIAMYCIN [Concomitant]
     Active Substance: DOXORUBICIN HYDROCHLORIDE
  11. CYCLOPHOSPHAMIDE [Concomitant]
     Active Substance: CYCLOPHOSPHAMIDE
  12. TAXOL [Concomitant]
     Active Substance: PACLITAXEL
  13. CAPECITABINE [Concomitant]
     Active Substance: CAPECITABINE

REACTIONS (8)
  - Respiratory failure [Fatal]
  - Disease progression [Fatal]
  - Neutropenia [Not Recovered/Not Resolved]
  - Weight decreased [Unknown]
  - Intentional product misuse [Recovered/Resolved]
  - Inappropriate schedule of product administration [Unknown]
  - Weight fluctuation [Unknown]
  - Weight decreased [Unknown]

NARRATIVE: CASE EVENT DATE: 20220101
